FAERS Safety Report 9069595 (Version 3)
Quarter: 2013Q3

REPORT INFORMATION
  Report Type: Report from Study
  Country: US (occurrence: US)
  Receive Date: 20130215
  Receipt Date: 20130916
  Transmission Date: 20140515
  Serious: Yes (Hospitalization, Disabling)
  Sender: FDA-Public Use
  Company Number: US-ACTELION-A-NJ2012-67435

PATIENT
  Age: 66 Year
  Sex: Female

DRUGS (8)
  1. TRACLEER [Suspect]
     Indication: PULMONARY ARTERIAL HYPERTENSION
     Dosage: 125 MG, BID
     Route: 048
     Dates: start: 2010
  2. TRACLEER [Suspect]
     Dosage: 62.5 MG, BID
     Route: 048
     Dates: start: 2010, end: 2010
  3. VELETRI [Suspect]
     Indication: PULMONARY ARTERIAL HYPERTENSION
     Dosage: 16 NG/KG, PER MIN
     Route: 042
     Dates: start: 20130308
  4. VELETRI [Suspect]
     Dosage: 12 NG/KG, PER MIN
     Route: 041
     Dates: start: 20130117
  5. VELETRI [Suspect]
     Dosage: 18 NG/KG, PER MIN
     Route: 042
     Dates: start: 201303
  6. VITAMIN E [Concomitant]
     Dosage: 400 MG, QD
  7. MULTIVITAMIN [Concomitant]
     Dosage: 1 TAB, QD
  8. CALCIUM [Concomitant]
     Dosage: 600 MG, QD

REACTIONS (18)
  - Dyspnoea [Not Recovered/Not Resolved]
  - Back pain [Recovering/Resolving]
  - Headache [Recovering/Resolving]
  - Pulmonary function test decreased [Unknown]
  - Feeling abnormal [Unknown]
  - Dizziness [Unknown]
  - Exercise tolerance decreased [Not Recovered/Not Resolved]
  - Fatigue [Unknown]
  - Cough [Recovering/Resolving]
  - Asthenia [Not Recovered/Not Resolved]
  - Flushing [Unknown]
  - Rash [Unknown]
  - Stent placement [Unknown]
  - Right ventricular failure [Recovering/Resolving]
  - Oedema peripheral [Not Recovered/Not Resolved]
  - Oedema [Not Recovered/Not Resolved]
  - Ascites [Not Recovered/Not Resolved]
  - Weight increased [Not Recovered/Not Resolved]
